FAERS Safety Report 10703692 (Version 1)
Quarter: 2015Q1

REPORT INFORMATION
  Report Type: Spontaneous
  Country: US (occurrence: US)
  Receive Date: 20150112
  Receipt Date: 20150112
  Transmission Date: 20150721
  Serious: Yes (Death)
  Sender: FDA-Public Use
  Company Number: US-PFIZER INC-2015009127

PATIENT
  Age: 56 Year
  Sex: Female

DRUGS (4)
  1. METAXALONE. [Suspect]
     Active Substance: METAXALONE
     Route: 048
  2. OXYCODONE [Suspect]
     Active Substance: OXYCODONE
     Route: 048
  3. HYDROCODONE [Suspect]
     Active Substance: HYDROCODONE
     Route: 048
  4. ACETAMINOPHEN. [Suspect]
     Active Substance: ACETAMINOPHEN
     Route: 048

REACTIONS (1)
  - Completed suicide [Fatal]

NARRATIVE: CASE EVENT DATE: 2013
